FAERS Safety Report 4987876-4 (Version None)
Quarter: 2006Q2

REPORT INFORMATION
  Report Type: 
  Country: None (occurrence: None)
  Receive Date: 20060424
  Receipt Date: 20060412
  Transmission Date: 20061013
  Serious: Yes (Life-Threatening, Hospitalization)
  Sender: FDA-Public Use
  Company Number: DE200603006958

PATIENT
  Age: 62 Year
  Sex: Female

DRUGS (7)
  1. ALIMTA [Suspect]
     Indication: PLEURAL MESOTHELIOMA
     Dosage: 500 MG/M2
     Dates: end: 20060328
  2. APREPITANT [Concomitant]
  3. DEXAMETH (DEXAMETHASONE) [Concomitant]
  4. FOLIC ACID [Concomitant]
  5. CYANOCOBALAMIN [Concomitant]
  6. ONDANSETRON HCL [Concomitant]
  7. CISPLATIN [Concomitant]

REACTIONS (1)
  - ANAPHYLACTIC REACTION [None]
